FAERS Safety Report 14524539 (Version 1)
Quarter: 2018Q1

REPORT INFORMATION
  Report Type: Spontaneous
  Country: NL (occurrence: NL)
  Receive Date: 20180213
  Receipt Date: 20180213
  Transmission Date: 20180509
  Serious: Yes (Death, Other)
  Sender: FDA-Public Use
  Company Number: NL-AMGEN-NLDSP2018018556

PATIENT
  Age: 71 Year
  Sex: Male

DRUGS (9)
  1. OMEPRAZOLE. [Concomitant]
     Active Substance: OMEPRAZOLE
     Indication: CHEST PAIN
     Dosage: 40 MG, UNK
  2. FLUCONAZOLE. [Concomitant]
     Active Substance: FLUCONAZOLE
     Indication: OESOPHAGEAL CANDIDIASIS
     Dosage: 200 MG, QD (FOR TWO WEEKS (MIC 1 MG/1))
  3. FILGRASTIM [Suspect]
     Active Substance: FILGRASTIM
     Indication: IMMUNE ENHANCEMENT THERAPY
     Dosage: 300 MUG, 3 TIMES/WK (FOR ONE MONTH)
     Route: 058
  4. FLUCONAZOLE. [Concomitant]
     Active Substance: FLUCONAZOLE
     Dosage: 800 MG, PER DAY
  5. FLUCONAZOLE. [Concomitant]
     Active Substance: FLUCONAZOLE
     Dosage: 150 MG, QD
  6. AMPHOTERICIN B. [Concomitant]
     Active Substance: AMPHOTERICIN B
     Indication: OESOPHAGEAL CANDIDIASIS
     Dosage: 400 MG, UNK, SIX TIMES (FOR TWO WEEKS)
     Route: 048
  7. FLUCYTOSINE. [Concomitant]
     Active Substance: FLUCYTOSINE
     Indication: OESOPHAGEAL CANDIDIASIS
     Dosage: 2000 MG, Q6H
     Route: 042
  8. CASPOFUNGIN [Concomitant]
     Active Substance: CASPOFUNGIN
     Indication: OESOPHAGEAL CANDIDIASIS
     Dosage: 70 MG, QD (FOR TWO WEEKS)
  9. INTERFERON GAMMA NOS [Suspect]
     Active Substance: INTERFERON GAMMA
     Indication: IMMUNE ENHANCEMENT THERAPY
     Dosage: UNK
     Route: 065

REACTIONS (5)
  - Off label use [Unknown]
  - Weight decreased [Unknown]
  - Squamous cell carcinoma [Unknown]
  - Respiratory failure [Fatal]
  - Condition aggravated [Unknown]
